FAERS Safety Report 10894025 (Version 13)
Quarter: 2015Q3

REPORT INFORMATION
  Report Type: Report from Study
  Country: BE (occurrence: BE)
  Receive Date: 20150306
  Receipt Date: 20150730
  Transmission Date: 20151125
  Serious: Yes (Hospitalization)
  Sender: FDA-Public Use
  Company Number: BE-ABBVIE-15P-013-1354860-00

PATIENT
  Age: 80 Year
  Sex: Female

DRUGS (16)
  1. DUODOPA [Suspect]
     Active Substance: CARBIDOPA\LEVODOPA
     Dosage: AM DOSE= 2.5ML, CD= 2ML/H DURING 16HRS, ND=1.3ML/H DURING 8HRS, ED= 1ML
     Route: 050
     Dates: start: 20150408, end: 20150409
  2. DUODOPA [Suspect]
     Active Substance: CARBIDOPA\LEVODOPA
     Dosage: AM=2ML;CD=2.2ML/HR DURING 16HRS;ED=1ML; ND=1.7ML/HR DURING 8HRS
     Route: 050
     Dates: start: 20150617
  3. DUODOPA [Suspect]
     Active Substance: CARBIDOPA\LEVODOPA
     Dosage: UNKNOWN
     Route: 050
     Dates: start: 20150302, end: 20150306
  4. DUODOPA [Suspect]
     Active Substance: CARBIDOPA\LEVODOPA
     Dosage: AM 2ML, CD 1.7ML/H IN 16HRS, ND 1.2ML/H IN 8HRS, ED 1ML
     Route: 050
     Dates: start: 20150417, end: 20150420
  5. DUODOPA [Suspect]
     Active Substance: CARBIDOPA\LEVODOPA
     Dosage: AM: 2.0ML; CD: 1.9ML/H FOR 16HRS; ND: 1.2ML/H FOR 8 HRS; ED:1ML
     Route: 050
     Dates: start: 20150409, end: 20150417
  6. DUODOPA [Suspect]
     Active Substance: CARBIDOPA\LEVODOPA
     Dosage: AM=2ML;CD=1.5ML/HR DURING 16HRS;ED=1ML; ND=1ML/HR DURING 8HRS
     Route: 050
     Dates: start: 20150420, end: 20150505
  7. DUODOPA [Suspect]
     Active Substance: CARBIDOPA\LEVODOPA
     Dosage: SEE NARRATIVE
     Route: 050
     Dates: start: 20150219, end: 20150302
  8. DUODOPA [Suspect]
     Active Substance: CARBIDOPA\LEVODOPA
     Dosage: AM=2 ML, CD=1.9 ML/H DURING 16H, ED=1 ML, ND=1.5 ML/H DURING 8 H
     Route: 050
     Dates: start: 20150505, end: 20150520
  9. DUODOPA [Suspect]
     Active Substance: CARBIDOPA\LEVODOPA
     Dosage: AM DOSE: 2ML, CD: 2.1ML/H DURING 16HRS, ND: 1.7ML/H DURING 16HRS, ED: 1ML
     Route: 050
     Dates: start: 20150520, end: 20150617
  10. MODURETIC 5-50 [Concomitant]
     Active Substance: AMILORIDE HYDROCHLORIDE\HYDROCHLOROTHIAZIDE
     Indication: PRODUCT USED FOR UNKNOWN INDICATION
     Dosage: FORM STRENGTH: 5MG/50MG
  11. DUODOPA [Suspect]
     Active Substance: CARBIDOPA\LEVODOPA
     Dosage: AM DOSE= 1ML, CONTIN DOSE= 1.6ML/H DURING 16HRS, EXTRA DOSE=0.7ML
     Route: 050
     Dates: start: 20150306, end: 20150310
  12. DUODOPA [Suspect]
     Active Substance: CARBIDOPA\LEVODOPA
     Dosage: AM = 2 ML, CD = 1.8 ML/H DURING 16H, ED = 1 ML, ND = 1.2 ML/H
     Route: 050
     Dates: start: 20150318, end: 20150408
  13. LOSFERRON [Concomitant]
     Indication: PRODUCT USED FOR UNKNOWN INDICATION
  14. DUODOPA [Suspect]
     Active Substance: CARBIDOPA\LEVODOPA
     Dosage: MD 2ML, CD 2ML/H IN 16HRS,ND 1.2ML/H IN 8HRS, ED 1ML
     Route: 050
     Dates: start: 20150310, end: 20150310
  15. DUODOPA [Suspect]
     Active Substance: CARBIDOPA\LEVODOPA
     Indication: PARKINSON^S DISEASE
     Dosage: AM 2.5 ML, CD 1.1 ML/H IN 16H, ED 0.5 ML, ND 0.8ML/H DUIRNG 8H
     Route: 050
     Dates: start: 20150216, end: 20150219
  16. PROLOPA [Concomitant]
     Active Substance: BENSERAZIDE\LEVODOPA
     Indication: PARKINSON^S DISEASE
     Dosage: FORM STRENGTH: 200MG/50MG; UNIT DOSE: 0.25 UNIT

REACTIONS (14)
  - Pneumonia [Recovering/Resolving]
  - Incorrect dose administered [Unknown]
  - Nausea [Unknown]
  - Underdose [Not Recovered/Not Resolved]
  - Gait disturbance [Recovering/Resolving]
  - Tremor [Recovered/Resolved]
  - Freezing phenomenon [Not Recovered/Not Resolved]
  - Dyskinesia [Recovered/Resolved]
  - Malaise [Recovering/Resolving]
  - Decreased appetite [Unknown]
  - Pyrexia [Unknown]
  - On and off phenomenon [Not Recovered/Not Resolved]
  - Tremor [Unknown]
  - On and off phenomenon [Unknown]

NARRATIVE: CASE EVENT DATE: 20150228
